FAERS Safety Report 15660315 (Version 1)
Quarter: 2018Q4

REPORT INFORMATION
  Report Type: Spontaneous
  Country: US (occurrence: US)
  Receive Date: 20181127
  Receipt Date: 20181127
  Transmission Date: 20190205
  Serious: Yes (Other)
  Sender: FDA-Public Use
  Company Number: US-TEVA-2018-US-980547

PATIENT
  Age: 37 Year
  Sex: Male

DRUGS (1)
  1. SERTRALINE [Suspect]
     Active Substance: SERTRALINE HYDROCHLORIDE
     Indication: SLEEP-RELATED EATING DISORDER
     Dosage: AT BEDTIME
     Route: 065

REACTIONS (2)
  - Libido decreased [Recovering/Resolving]
  - Erectile dysfunction [Recovering/Resolving]
